FAERS Safety Report 12816582 (Version 1)
Quarter: 2016Q4

REPORT INFORMATION
  Report Type: Spontaneous
  Country: US (occurrence: US)
  Receive Date: 20161006
  Receipt Date: 20161006
  Transmission Date: 20170207
  Serious: No
  Sender: FDA-Public Use
  Company Number: US-NOVEN PHARMACEUTICALS, INC.-US2016000397

PATIENT

DRUGS (8)
  1. FINASTERIDE. [Concomitant]
     Active Substance: FINASTERIDE
     Indication: ALOPECIA
  2. COMBIPATCH [Suspect]
     Active Substance: ESTRADIOL\NORETHINDRONE ACETATE
     Indication: NIGHT SWEATS
     Dosage: 0.05/0.14 MG, 2/WK
     Route: 062
     Dates: start: 201602
  3. CLOZEPAM [Concomitant]
  4. RESTASIS [Concomitant]
     Active Substance: CYCLOSPORINE
     Indication: DRY EYE
  5. COMBIPATCH [Suspect]
     Active Substance: ESTRADIOL\NORETHINDRONE ACETATE
     Indication: HOT FLUSH
     Dosage: 0.05/0.14 MG, 2/WK
     Route: 062
     Dates: start: 2005, end: 2012
  6. VITAMINS [Concomitant]
     Active Substance: VITAMINS
  7. COMBIPATCH [Suspect]
     Active Substance: ESTRADIOL\NORETHINDRONE ACETATE
     Indication: HORMONE REPLACEMENT THERAPY
  8. COMBIPATCH [Suspect]
     Active Substance: ESTRADIOL\NORETHINDRONE ACETATE
     Indication: INSOMNIA

REACTIONS (5)
  - Nipple disorder [Not Recovered/Not Resolved]
  - Breast pain [Not Recovered/Not Resolved]
  - Breast tenderness [Not Recovered/Not Resolved]
  - Off label use [Not Recovered/Not Resolved]
  - Vaginal haemorrhage [Not Recovered/Not Resolved]

NARRATIVE: CASE EVENT DATE: 2005
